FAERS Safety Report 6713659-0 (Version None)
Quarter: 2010Q2

REPORT INFORMATION
  Report Type: 
  Country: None (occurrence: None)
  Receive Date: 20100506
  Receipt Date: 20100429
  Transmission Date: 20101027
  Serious: Yes (Death)
  Sender: FDA-Public Use
  Company Number: B0651448A

PATIENT
  Sex: Female
  Weight: 50 kg

DRUGS (13)
  1. LEUKERAN [Suspect]
     Indication: NON-HODGKIN'S LYMPHOMA
     Route: 048
     Dates: start: 20061222, end: 20070424
  2. PREDNISOLON [Suspect]
     Indication: NON-HODGKIN'S LYMPHOMA
     Route: 048
     Dates: start: 20070524, end: 20071018
  3. MABTHERA [Suspect]
     Indication: NON-HODGKIN'S LYMPHOMA
     Route: 042
     Dates: start: 20070524, end: 20071018
  4. FLUDARA [Suspect]
     Indication: NON-HODGKIN'S LYMPHOMA
     Route: 042
     Dates: start: 20080605, end: 20081023
  5. ENDOXAN [Suspect]
     Indication: NON-HODGKIN'S LYMPHOMA
     Route: 042
     Dates: start: 20070524, end: 20071018
  6. ENDOXAN [Suspect]
     Route: 042
     Dates: start: 20080605, end: 20081023
  7. VINCRISTINE [Suspect]
     Indication: NON-HODGKIN'S LYMPHOMA
     Route: 042
     Dates: start: 20070524, end: 20071018
  8. MABTHERA [Suspect]
     Route: 042
     Dates: start: 20080605, end: 20081023
  9. DEXAMETHASONE TAB [Suspect]
     Indication: DRUG USE FOR UNKNOWN INDICATION
     Dosage: 20MG FIVE TIMES PER DAY
     Route: 048
     Dates: start: 20061222, end: 20070424
  10. COTRIM [Concomitant]
     Route: 048
     Dates: start: 20080605, end: 20090226
  11. COSOPT [Concomitant]
     Route: 047
     Dates: start: 20090201
  12. XALATAN [Concomitant]
     Route: 047
     Dates: start: 20090201
  13. FOLIC ACID [Concomitant]
     Route: 048
     Dates: start: 20080605, end: 20090226

REACTIONS (1)
  - PROGRESSIVE MULTIFOCAL LEUKOENCEPHALOPATHY [None]
